FAERS Safety Report 7950372-6 (Version None)
Quarter: 2011Q4

REPORT INFORMATION
  Report Type: 
  Country: None (occurrence: None)
  Receive Date: 20111130
  Receipt Date: 20111125
  Transmission Date: 20120403
  Serious: Yes (Other)
  Sender: FDA-Public Use
  Company Number: VE-PFIZER INC-2011246718

PATIENT
  Age: 62 Year
  Sex: Female

DRUGS (1)
  1. ZOLOFT [Suspect]
     Indication: DEPRESSION
     Dosage: 200 MG, 1X/DAY
     Route: 048
     Dates: start: 20100101, end: 20110801

REACTIONS (7)
  - HYPERTENSIVE CRISIS [None]
  - DIZZINESS [None]
  - OVERDOSE [None]
  - TOXICITY TO VARIOUS AGENTS [None]
  - TREMOR [None]
  - INSOMNIA [None]
  - CONFUSIONAL STATE [None]
